FAERS Safety Report 9464770 (Version 1)
Quarter: 2013Q3

REPORT INFORMATION
  Report Type: Spontaneous
  Country: US (occurrence: US)
  Receive Date: 20130819
  Receipt Date: 20130819
  Transmission Date: 20140515
  Serious: No
  Sender: FDA-Public Use
  Company Number: US-PFIZER INC-2013236300

PATIENT
  Age: 36 Year
  Sex: Female
  Weight: 70.3 kg

DRUGS (3)
  1. VISTARIL [Suspect]
     Indication: ANXIETY
     Dosage: 150 MG, UNK
     Route: 048
     Dates: start: 201209
  2. VISTARIL [Suspect]
     Dosage: 450 MG, UNK
  3. GEODON [Concomitant]
     Dosage: 150 MG, 2X/DAY

REACTIONS (3)
  - Drug ineffective [Unknown]
  - Anxiety [Unknown]
  - Incorrect dose administered [Unknown]
